FAERS Safety Report 17737141 (Version 1)
Quarter: 2020Q2

REPORT INFORMATION
  Report Type: Spontaneous
  Country: FR (occurrence: FR)
  Receive Date: 20200502
  Receipt Date: 20200502
  Transmission Date: 20200714
  Serious: Yes (Hospitalization)
  Sender: FDA-Public Use
  Company Number: FR-TEVA-2020-FR-1229443

PATIENT
  Age: 93 Year
  Sex: Male

DRUGS (15)
  1. NEFOPAM (CHLORHYDRATE DE) [Concomitant]
     Active Substance: NEFOPAM HYDROCHLORIDE
     Route: 048
  2. ALTIZIDE [Suspect]
     Active Substance: ALTHIAZIDE
     Dosage: 7.5 MG DAILY
     Route: 048
     Dates: end: 20200306
  3. PARACETAMOL [Concomitant]
     Active Substance: ACETAMINOPHEN
     Route: 048
  4. BISOPROLOL (FUMARATE ACIDE DE) [Concomitant]
     Active Substance: BISOPROLOL FUMARATE
     Route: 048
  5. VENLAFAXINE [Suspect]
     Active Substance: VENLAFAXINE HYDROCHLORIDE
     Dosage: 75 MG
     Route: 048
     Dates: end: 20200306
  6. MOVICOL, POWDER FOR ORAL SOLUTION IN SACHET [Concomitant]
     Route: 048
  7. VITAMIN D3 [Concomitant]
     Active Substance: CHOLECALCIFEROL
     Route: 048
     Dates: end: 20200314
  8. KARDEGIC, 75 MG POWDER FOR ORAL SOLUTION IN SACHET-DOSE [Concomitant]
     Dosage: 75 MG
     Route: 048
  9. ACIDE FOLIQUE [Concomitant]
     Active Substance: FOLIC ACID
     Route: 048
     Dates: end: 20200319
  10. DIFFU K, CAPSULE [Concomitant]
     Active Substance: POTASSIUM CHLORIDE
     Route: 048
  11. SERESTA 10 MG,TABLET [Concomitant]
     Route: 048
  12. REFRESH, EYE DROPS IN SINGLE-DOSE CONTAINER [Concomitant]
     Route: 047
  13. SPIRONOLACTONE. [Suspect]
     Active Substance: SPIRONOLACTONE
     Dosage: 12.5 MG
     Route: 048
     Dates: end: 20200306
  14. LASILIX (FUROSEMIDE) [Suspect]
     Active Substance: FUROSEMIDE
     Dosage: 1 DOSAGE FORMS
     Route: 048
  15. GANFORT 300 MICROGRAMS / ML + 5 MG / ML, EYE DROPS, SOLUTION [Concomitant]
     Dosage: 300 MICROGRAMS / ML + 5 MG / ML,
     Route: 047

REACTIONS (2)
  - General physical health deterioration [Recovering/Resolving]
  - Hypokalaemia [Recovering/Resolving]

NARRATIVE: CASE EVENT DATE: 20200306
